FAERS Safety Report 24165115 (Version 2)
Quarter: 2024Q3

REPORT INFORMATION
  Report Type: Spontaneous
  Country: US (occurrence: US)
  Receive Date: 20240802
  Receipt Date: 20240808
  Transmission Date: 20241016
  Serious: No
  Sender: ELI LILLY AND CO
  Company Number: US-ELI_LILLY_AND_COMPANY-US202407009155

PATIENT
  Age: 63 Year
  Sex: Male

DRUGS (24)
  1. MOUNJARO [Suspect]
     Active Substance: TIRZEPATIDE
     Indication: Diabetes mellitus
     Dosage: 2.5 MG, UNKNOWN (EVERY 7 DAYS AND 3-12 HOURS)
     Route: 058
     Dates: start: 202205
  2. MOUNJARO [Suspect]
     Active Substance: TIRZEPATIDE
     Indication: Diabetes mellitus
     Dosage: 2.5 MG, UNKNOWN (EVERY 7 DAYS AND 3-12 HOURS)
     Route: 058
     Dates: start: 202205
  3. MOUNJARO [Suspect]
     Active Substance: TIRZEPATIDE
     Indication: Diabetes mellitus
     Dosage: 2.5 MG, UNKNOWN (EVERY 7 DAYS AND 3-12 HOURS)
     Route: 058
     Dates: start: 202205
  4. MOUNJARO [Suspect]
     Active Substance: TIRZEPATIDE
     Indication: Diabetes mellitus
     Dosage: 2.5 MG, UNKNOWN (EVERY 7 DAYS AND 3-12 HOURS)
     Route: 058
     Dates: start: 202205
  5. MOUNJARO [Suspect]
     Active Substance: TIRZEPATIDE
     Dosage: 5 MG, UNKNOWN (EVERY 7 DAYS AND 3-12 HOURS)
     Route: 058
  6. MOUNJARO [Suspect]
     Active Substance: TIRZEPATIDE
     Dosage: 5 MG, UNKNOWN (EVERY 7 DAYS AND 3-12 HOURS)
     Route: 058
  7. MOUNJARO [Suspect]
     Active Substance: TIRZEPATIDE
     Dosage: 5 MG, UNKNOWN (EVERY 7 DAYS AND 3-12 HOURS)
     Route: 058
  8. MOUNJARO [Suspect]
     Active Substance: TIRZEPATIDE
     Dosage: 5 MG, UNKNOWN (EVERY 7 DAYS AND 3-12 HOURS)
     Route: 058
  9. MOUNJARO [Suspect]
     Active Substance: TIRZEPATIDE
     Dosage: 7.5 MG, UNKNOWN (EVERY 7 DAYS AND 3-12 HOURS)
     Route: 058
  10. MOUNJARO [Suspect]
     Active Substance: TIRZEPATIDE
     Dosage: 7.5 MG, UNKNOWN (EVERY 7 DAYS AND 3-12 HOURS)
     Route: 058
  11. MOUNJARO [Suspect]
     Active Substance: TIRZEPATIDE
     Dosage: 7.5 MG, UNKNOWN (EVERY 7 DAYS AND 3-12 HOURS)
     Route: 058
  12. MOUNJARO [Suspect]
     Active Substance: TIRZEPATIDE
     Dosage: 7.5 MG, UNKNOWN (EVERY 7 DAYS AND 3-12 HOURS)
     Route: 058
  13. MOUNJARO [Suspect]
     Active Substance: TIRZEPATIDE
     Dosage: 10 MG, UNKNOWN (EVERY 7 DAYS AND 3-12 HOURS)
     Route: 058
  14. MOUNJARO [Suspect]
     Active Substance: TIRZEPATIDE
     Dosage: 10 MG, UNKNOWN (EVERY 7 DAYS AND 3-12 HOURS)
     Route: 058
  15. MOUNJARO [Suspect]
     Active Substance: TIRZEPATIDE
     Dosage: 10 MG, UNKNOWN (EVERY 7 DAYS AND 3-12 HOURS)
     Route: 058
  16. MOUNJARO [Suspect]
     Active Substance: TIRZEPATIDE
     Dosage: 10 MG, UNKNOWN (EVERY 7 DAYS AND 3-12 HOURS)
     Route: 058
  17. MOUNJARO [Suspect]
     Active Substance: TIRZEPATIDE
     Dosage: 12.5 MG, UNKNOWN (EVERY 7 DAYS AND 3-12 HOURS)
     Route: 058
  18. MOUNJARO [Suspect]
     Active Substance: TIRZEPATIDE
     Dosage: 12.5 MG, UNKNOWN (EVERY 7 DAYS AND 3-12 HOURS)
     Route: 058
  19. MOUNJARO [Suspect]
     Active Substance: TIRZEPATIDE
     Dosage: 12.5 MG, UNKNOWN (EVERY 7 DAYS AND 3-12 HOURS)
     Route: 058
  20. MOUNJARO [Suspect]
     Active Substance: TIRZEPATIDE
     Dosage: 12.5 MG, UNKNOWN (EVERY 7 DAYS AND 3-12 HOURS)
     Route: 058
  21. MOUNJARO [Suspect]
     Active Substance: TIRZEPATIDE
     Dosage: 15 MG, UNKNOWN (EVERY 7 DAYS AND 3-12 HOURS)
     Route: 058
  22. MOUNJARO [Suspect]
     Active Substance: TIRZEPATIDE
     Dosage: 15 MG, UNKNOWN (EVERY 7 DAYS AND 3-12 HOURS)
     Route: 058
  23. MOUNJARO [Suspect]
     Active Substance: TIRZEPATIDE
     Dosage: 15 MG, UNKNOWN (EVERY 7 DAYS AND 3-12 HOURS)
     Route: 058
  24. MOUNJARO [Suspect]
     Active Substance: TIRZEPATIDE
     Dosage: 15 MG, UNKNOWN (EVERY 7 DAYS AND 3-12 HOURS)
     Route: 058

REACTIONS (5)
  - Eating disorder [Unknown]
  - Rash [Unknown]
  - Flatulence [Unknown]
  - Constipation [Unknown]
  - Nausea [Unknown]
